FAERS Safety Report 12677439 (Version 1)
Quarter: 2016Q3

REPORT INFORMATION
  Report Type: Report from Study
  Country: US (occurrence: US)
  Receive Date: 20160823
  Receipt Date: 20160823
  Transmission Date: 20161109
  Serious: Yes (Hospitalization)
  Sender: FDA-Public Use
  Company Number: US-ABBVIE-16K-163-1702434-00

PATIENT
  Age: 33 Year
  Sex: Female
  Weight: 106.69 kg

DRUGS (2)
  1. REMICADE [Concomitant]
     Active Substance: INFLIXIMAB
     Indication: COLITIS ULCERATIVE
  2. HUMIRA [Suspect]
     Active Substance: ADALIMUMAB
     Indication: COLITIS ULCERATIVE
     Route: 058
     Dates: start: 201510, end: 20160601

REACTIONS (11)
  - Asthenia [Recovered/Resolved]
  - Dizziness [Recovered/Resolved]
  - Pancreatitis [Recovered/Resolved]
  - Clostridium difficile infection [Recovered/Resolved]
  - Dizziness [Recovered/Resolved]
  - Electrolyte imbalance [Recovered/Resolved]
  - Abdominal pain [Recovered/Resolved]
  - Clostridium difficile infection [Recovered/Resolved]
  - Asthenia [Recovered/Resolved]
  - Abdominal pain [Recovered/Resolved]
  - Clostridium difficile infection [Recovered/Resolved]

NARRATIVE: CASE EVENT DATE: 201601
